FAERS Safety Report 9357808 (Version 1)
Quarter: 2013Q2

REPORT INFORMATION
  Report Type: Spontaneous
  Country: US (occurrence: None)
  Receive Date: 20130619
  Receipt Date: 20130619
  Transmission Date: 20140414
  Serious: Yes (Hospitalization)
  Sender: FDA-Public Use
  Company Number: None

PATIENT
  Age: 69 Year
  Sex: Male
  Weight: 75.8 kg

DRUGS (1)
  1. SORAFENIB [Suspect]
     Indication: HEPATOCELLULAR CARCINOMA
     Route: 048
     Dates: start: 20130418, end: 20130518

REACTIONS (7)
  - Night sweats [None]
  - Nausea [None]
  - Hyperhidrosis [None]
  - Decreased appetite [None]
  - Asthenia [None]
  - Fatigue [None]
  - Vomiting [None]
